FAERS Safety Report 9154445 (Version 1)
Quarter: 2013Q1

REPORT INFORMATION
  Report Type: Spontaneous
  Country: US (occurrence: None)
  Receive Date: 20130207
  Receipt Date: 20130207
  Transmission Date: 20140127
  Serious: Yes (Other)
  Sender: FDA-Public Use
  Company Number: ACO_33984_2013

PATIENT
  Age: 47 Year
  Sex: Male

DRUGS (9)
  1. AMPYRA (DALFAMPRIDINE) TABLET, 10MG [Suspect]
     Indication: GAIT DISTURBANCE
     Route: 048
     Dates: start: 2010
  2. DETROL LA (TOLTERODINE L-TARTRATE) [Concomitant]
  3. COPAXONE (GLATIRAMER ACETATE) [Concomitant]
  4. ASPIRIN (ACETYLSALICYLIC ACID) [Concomitant]
  5. HYDROCODONE/APAP (HYDROCODONE BITARTRATE, PARACETAMOL) [Concomitant]
  6. INDAPAMIDE (INDAPAMIDE) [Concomitant]
  7. GABAPENTIN (GABAPENTIN) [Concomitant]
  8. PROVIGIL (MODAFINIL) [Concomitant]
  9. TYLENOL (PARACETAMOL) [Concomitant]

REACTIONS (1)
  - Hallucination, visual [None]
